FAERS Safety Report 9525212 (Version 1)
Quarter: 2013Q3

REPORT INFORMATION
  Report Type: Spontaneous
  Country: US (occurrence: None)
  Receive Date: 20130913
  Receipt Date: 20130913
  Transmission Date: 20140515
  Serious: Yes (Other)
  Sender: FDA-Public Use
  Company Number: None

PATIENT
  Age: 48 Year
  Sex: Female

DRUGS (1)
  1. RIBAVIRIN [Suspect]
     Indication: HEPATITIS C
     Dosage: 3 TABLETS  DAILY  ORAL
     Route: 048
     Dates: start: 20130503, end: 20130903

REACTIONS (8)
  - Syncope [None]
  - Dyspnoea [None]
  - Insomnia [None]
  - Vomiting [None]
  - Pyrexia [None]
  - Asthenia [None]
  - White blood cell count decreased [None]
  - Anaemia [None]
